FAERS Safety Report 19056885 (Version 1)
Quarter: 2021Q1

REPORT INFORMATION
  Report Type: Spontaneous
  Country: US (occurrence: US)
  Receive Date: 20210325
  Receipt Date: 20210325
  Transmission Date: 20210420
  Serious: Yes (Other)
  Sender: FDA-Public Use
  Company Number: None

PATIENT
  Age: 38 Year
  Sex: Female
  Weight: 124.9 kg

DRUGS (1)
  1. ETONOGESTREL?ETHINYL ESTRADIOL [Suspect]
     Active Substance: ETHINYL ESTRADIOL\ETONOGESTREL
     Indication: CONTRACEPTION
     Dosage: ?          OTHER FREQUENCY:EVERY 3 WEEKS;?
     Route: 067

REACTIONS (1)
  - Vulvovaginal discomfort [None]

NARRATIVE: CASE EVENT DATE: 20201215
